FAERS Safety Report 11263680 (Version 1)
Quarter: 2015Q3

REPORT INFORMATION
  Report Type: Spontaneous
  Country: US (occurrence: None)
  Receive Date: 20150710
  Receipt Date: 20150710
  Transmission Date: 20151125
  Serious: No
  Sender: FDA-Public Use
  Company Number: None

PATIENT
  Age: 45 Year
  Sex: Female

DRUGS (2)
  1. TECFIDERA [Suspect]
     Active Substance: DIMETHYL FUMARATE
     Indication: MULTIPLE SCLEROSIS
     Dosage: 240 MG, BID, PO
     Route: 048
     Dates: start: 20150612
  2. TECFIDERA [Suspect]
     Active Substance: DIMETHYL FUMARATE
     Indication: MULTIPLE SCLEROSIS
     Dosage: 120 MG (FOR FIRST 7 DAYS) THEN 240 MG
     Route: 048
     Dates: start: 20150504, end: 20150611

REACTIONS (2)
  - Gastrointestinal disorder [None]
  - Abdominal discomfort [None]

NARRATIVE: CASE EVENT DATE: 20150602
